FAERS Safety Report 24955045 (Version 1)
Quarter: 2025Q1

REPORT INFORMATION
  Report Type: Spontaneous
  Country: US (occurrence: None)
  Receive Date: 20250210
  Receipt Date: 20250210
  Transmission Date: 20250409
  Serious: Yes (Other)
  Sender: FDA-CTU
  Company Number: None

PATIENT
  Age: 42 Year
  Sex: Female
  Weight: 49.5 kg

DRUGS (12)
  1. DOXYCYCLINE HYCLATE [Suspect]
     Active Substance: DOXYCYCLINE HYCLATE
     Indication: Lower respiratory tract infection
     Dosage: OTHER QUANTITY : 1 CAPSULE(S);?FREQUENCY : TWICE A DAY;?
     Route: 048
     Dates: start: 20241207, end: 20241217
  2. SYNTHROID [Concomitant]
     Active Substance: LEVOTHYROXINE SODIUM
  3. NAC [Concomitant]
  4. CURAMED [Concomitant]
  5. VITAMIN D [Concomitant]
     Active Substance: VITAMIN D NOS
  6. Sea Moss [Concomitant]
  7. VITAMIN B COMPLEX [Concomitant]
     Active Substance: CYANOCOBALAMIN\DEXPANTHENOL\NIACINAMIDE\PYRIDOXINE HYDROCHLORIDE\RIBOFLAVIN 5^-PHOSPHATE SODIUM\THIA
  8. PSYLLIUM FIBER [Concomitant]
     Active Substance: PSYLLIUM HUSK
  9. ZINC [Concomitant]
     Active Substance: ZINC
  10. HERBALS [Concomitant]
     Active Substance: HERBALS
  11. VITAMIN C [Concomitant]
     Active Substance: ASCORBIC ACID
  12. MAGNESIUM [Concomitant]
     Active Substance: MAGNESIUM

REACTIONS (5)
  - Mood swings [None]
  - Emotional disorder [None]
  - Aggression [None]
  - Panic attack [None]
  - Suicidal ideation [None]

NARRATIVE: CASE EVENT DATE: 20241209
